FAERS Safety Report 6546825-8 (Version None)
Quarter: 2010Q1

REPORT INFORMATION
  Report Type: 
  Country: None (occurrence: None)
  Receive Date: 20100122
  Receipt Date: 20100114
  Transmission Date: 20100710
  Serious: Yes (Other)
  Sender: FDA-Public Use
  Company Number: US-PFIZER INC-2009312288

PATIENT
  Sex: Male
  Weight: 28.571 kg

DRUGS (5)
  1. GENOTROPIN [Suspect]
     Indication: GROWTH HORMONE DEFICIENCY
     Dosage: 1.2 MG, 1X/DAY
     Route: 058
     Dates: start: 20090701
  2. PULMICORT [Concomitant]
     Indication: ASTHMA
     Dosage: UNK
     Route: 055
  3. PULMICORT [Concomitant]
     Indication: HYPERSENSITIVITY
  4. FLONASE [Concomitant]
     Indication: ASTHMA
     Dosage: UNK
     Route: 045
  5. FLONASE [Concomitant]
     Indication: HYPERSENSITIVITY

REACTIONS (4)
  - ARTHRALGIA [None]
  - GAIT DISTURBANCE [None]
  - JOINT SWELLING [None]
  - OSTEOCHONDROSIS [None]
